FAERS Safety Report 5952776-X (Version None)
Quarter: 2008Q4

REPORT INFORMATION
  Report Type: 
  Country: None (occurrence: None)
  Receive Date: 20081114
  Receipt Date: 20081111
  Transmission Date: 20090506
  Serious: Yes (Hospitalization)
  Sender: FDA-Public Use
  Company Number: US-B.I. PHARMACEUTICALS,INC./RIDGEFIELD-2008-BP-16327BP

PATIENT
  Sex: Male

DRUGS (11)
  1. SPIRIVA [Suspect]
     Indication: CHRONIC OBSTRUCTIVE PULMONARY DISEASE
     Dosage: 18MCG
     Route: 055
     Dates: start: 20050101
  2. PREDNISONE TAB [Concomitant]
  3. ADVAIR DISKUS 100/50 [Concomitant]
     Indication: CHRONIC OBSTRUCTIVE PULMONARY DISEASE
  4. COUMADIN (JANTOVEN) [Concomitant]
     Indication: ANTICOAGULANT THERAPY
     Dosage: 2.5MG
  5. LISINOPRIL [Concomitant]
     Dosage: 20MG
  6. VERAPAMIL [Concomitant]
     Dosage: 180MG
  7. TERAZOSIN HCL [Concomitant]
     Dosage: 2MG
  8. GLIMPRIDE [Concomitant]
     Indication: DIABETES MELLITUS
     Dosage: 8MG
  9. METFORMIN HCL [Concomitant]
     Indication: DIABETES MELLITUS
     Dosage: 1000MG
  10. FEXOFENADINE [Concomitant]
     Dosage: 180MG
  11. HYDROCHLOROT [Concomitant]
     Dosage: 25MG

REACTIONS (2)
  - EXTRASYSTOLES [None]
  - URINARY TRACT INFECTION [None]
